FAERS Safety Report 25149013 (Version 1)
Quarter: 2025Q2

REPORT INFORMATION
  Report Type: Spontaneous
  Country: CN (occurrence: CN)
  Receive Date: 20250402
  Receipt Date: 20250402
  Transmission Date: 20250716
  Serious: Yes (Other)
  Sender: RANBAXY
  Company Number: CN-SUN PHARMACEUTICAL INDUSTRIES LTD-2025R1-501411

PATIENT
  Sex: Female
  Weight: 3.2 kg

DRUGS (3)
  1. MESALAMINE [Suspect]
     Active Substance: MESALAMINE
     Indication: Inflammatory bowel disease
     Route: 065
  2. MESALAMINE [Suspect]
     Active Substance: MESALAMINE
     Indication: Female genital tract fistula
  3. PREDNISOLONE [Suspect]
     Active Substance: PREDNISOLONE
     Indication: Faeces hard
     Route: 065

REACTIONS (1)
  - Condition aggravated [Unknown]
